FAERS Safety Report 5415636-9 (Version None)
Quarter: 2007Q3

REPORT INFORMATION
  Report Type: 
  Country: None (occurrence: None)
  Receive Date: 20070815
  Receipt Date: 20070810
  Transmission Date: 20080115
  Serious: Yes (Death)
  Sender: FDA-Public Use
  Company Number: JP-JNJFOC-20070800086

PATIENT
  Sex: Male

DRUGS (12)
  1. ITRACONAZOLE [Suspect]
     Route: 041
  2. ITRACONAZOLE [Suspect]
     Indication: FUNGAEMIA
     Route: 041
  3. CEFTRIAXONE SODIUM [Concomitant]
     Indication: PNEUMONIA
     Route: 042
  4. FAMOTIDINE [Concomitant]
     Indication: GASTRIC ULCER
     Route: 048
  5. LOXOPROFEN SODIUM [Concomitant]
     Indication: CANCER PAIN
     Route: 048
  6. EVIPROSTAT [Concomitant]
     Indication: DYSURIA
     Route: 048
  7. ZOLEDRONIC ACID [Concomitant]
     Indication: HYPERCALCAEMIA
     Route: 042
  8. ZOLEDRONIC ACID [Concomitant]
     Indication: METASTASES TO BONE
     Route: 042
  9. CEFOZOPRAN [Concomitant]
     Indication: PNEUMONIA
     Route: 042
  10. METHYLPREDNISOLONE SODIUM SUCCINATE [Concomitant]
     Indication: RESPIRATORY FAILURE
     Route: 042
  11. HALOPERIDOL [Concomitant]
     Indication: RESTLESSNESS
     Route: 042
  12. RANITIDINE [Concomitant]
     Indication: PROPHYLAXIS
     Route: 048

REACTIONS (4)
  - HYPERCALCAEMIA [None]
  - LUNG NEOPLASM MALIGNANT [None]
  - PNEUMONIA [None]
  - RESPIRATORY FAILURE [None]
